FAERS Safety Report 21181827 (Version 2)
Quarter: 2022Q4

REPORT INFORMATION
  Report Type: Report from Study
  Country: DE (occurrence: DE)
  Receive Date: 20220806
  Receipt Date: 20221013
  Transmission Date: 20230113
  Serious: Yes (Other)
  Sender: FDA-Public Use
  Company Number: DE-TAKEDA-2022TUS051941

PATIENT
  Age: 60 Year
  Sex: Female

DRUGS (16)
  1. TEDUGLUTIDE [Suspect]
     Active Substance: TEDUGLUTIDE
     Indication: Short-bowel syndrome
     Dosage: UNK UNK, QD
     Route: 042
     Dates: start: 20200317, end: 20200918
  2. TEDUGLUTIDE [Suspect]
     Active Substance: TEDUGLUTIDE
     Indication: Short-bowel syndrome
     Dosage: UNK UNK, QD
     Route: 042
     Dates: start: 20200317, end: 20200918
  3. TEDUGLUTIDE [Suspect]
     Active Substance: TEDUGLUTIDE
     Indication: Short-bowel syndrome
     Dosage: UNK UNK, QD
     Route: 042
     Dates: start: 20200317, end: 20200918
  4. TEDUGLUTIDE [Suspect]
     Active Substance: TEDUGLUTIDE
     Indication: Short-bowel syndrome
     Dosage: UNK UNK, QD
     Route: 042
     Dates: start: 20200317, end: 20200918
  5. TEDUGLUTIDE [Suspect]
     Active Substance: TEDUGLUTIDE
     Dosage: 1.750 MILLIGRAM, QD
     Route: 042
     Dates: start: 20201013, end: 20201211
  6. TEDUGLUTIDE [Suspect]
     Active Substance: TEDUGLUTIDE
     Dosage: 1.750 MILLIGRAM, QD
     Route: 042
     Dates: start: 20201013, end: 20201211
  7. TEDUGLUTIDE [Suspect]
     Active Substance: TEDUGLUTIDE
     Dosage: 1.750 MILLIGRAM, QD
     Route: 042
     Dates: start: 20201013, end: 20201211
  8. TEDUGLUTIDE [Suspect]
     Active Substance: TEDUGLUTIDE
     Dosage: 1.750 MILLIGRAM, QD
     Route: 042
     Dates: start: 20201013, end: 20201211
  9. AMLODIPINE BESYLATE [Concomitant]
     Active Substance: AMLODIPINE BESYLATE
     Indication: Hypertension
     Dosage: 5.00 MILLIGRAM, BID
     Route: 048
  10. Kabivital [Concomitant]
     Indication: Prophylaxis
     Dosage: 1000 INTERNATIONAL UNIT, QID
     Route: 065
     Dates: start: 20220215
  11. Kabivital [Concomitant]
     Indication: Vitamin D deficiency
     Dosage: 1000 INTERNATIONAL UNIT, TID
     Route: 065
     Dates: start: 20220708
  12. PANCRELIPASE [Concomitant]
     Active Substance: PANCRELIPASE
     Indication: Product used for unknown indication
     Dosage: 25000 INTERNATIONAL UNIT, TID
     Route: 048
  13. PANTOPRAZOLE SODIUM [Concomitant]
     Active Substance: PANTOPRAZOLE SODIUM
     Indication: Gastrointestinal disorder prophylaxis
     Dosage: 40 MILLIGRAM, QD
     Route: 042
  14. PANTOZOL [Concomitant]
     Active Substance: PANTOPRAZOLE SODIUM
     Indication: Gastrointestinal disorder prophylaxis
     Dosage: 40 MILLIGRAM, QD
     Route: 042
  15. LOPERAMIDE [Concomitant]
     Active Substance: LOPERAMIDE
     Indication: Diarrhoea
     Dosage: 2 MILLIGRAM, BID
     Route: 048
     Dates: start: 20220601
  16. SIMVASTATIN [Concomitant]
     Active Substance: SIMVASTATIN
     Indication: Lipoprotein (a)
     Dosage: 30 MILLIGRAM, QD
     Route: 048
     Dates: start: 20220602

REACTIONS (1)
  - Thrombocytopenia [Not Recovered/Not Resolved]

NARRATIVE: CASE EVENT DATE: 20220701
